FAERS Safety Report 4737347-5 (Version None)
Quarter: 2005Q3

REPORT INFORMATION
  Report Type: 
  Country: None (occurrence: None)
  Receive Date: 20050805
  Receipt Date: 20050728
  Transmission Date: 20060218
  Serious: Yes (Hospitalization, Other)
  Sender: FDA-Public Use
  Company Number: B0258347A 2002000515-1

PATIENT
  Age: 45 Year
  Sex: Female
  Weight: 140.7058 kg

DRUGS (5)
  1. PAXIL [Suspect]
     Indication: DEPRESSION
  2. CLONAZEPAM [Concomitant]
  3. DEXTROMETHORPHAN HBR [Concomitant]
  4. PARACETAMOL [Concomitant]
  5. PSEUDOEPHEDRINE HCL [Concomitant]

REACTIONS (10)
  - CARCINOID TUMOUR PULMONARY [None]
  - CARDIOVASCULAR DISORDER [None]
  - CAROTID ARTERY ANEURYSM [None]
  - CEREBROVASCULAR DISORDER [None]
  - DEPRESSION [None]
  - HEADACHE [None]
  - ISCHAEMIC STROKE [None]
  - NAUSEA [None]
  - RED BLOOD CELL SEDIMENTATION RATE INCREASED [None]
  - VASOCONSTRICTION [None]
